FAERS Safety Report 25790643 (Version 1)
Quarter: 2025Q3

REPORT INFORMATION
  Report Type: Spontaneous
  Country: EU (occurrence: EU)
  Receive Date: 20250911
  Receipt Date: 20250911
  Transmission Date: 20251021
  Serious: Yes (Other)
  Sender: ROCHE
  Company Number: None

PATIENT
  Age: 35 Year
  Sex: Female

DRUGS (4)
  1. OCRELIZUMAB [Suspect]
     Active Substance: OCRELIZUMAB
     Indication: Relapsing-remitting multiple sclerosis
     Dosage: 600 MG 6/6 MESES
     Route: 042
     Dates: start: 20200525
  2. PREGABALIN [Concomitant]
     Active Substance: PREGABALIN
  3. VITAMINA D [COLECALCIFEROL] [Concomitant]
  4. CALCIFEDIOL [Concomitant]
     Active Substance: CALCIFEDIOL

REACTIONS (3)
  - Maternal exposure during pregnancy [Unknown]
  - Abortion missed [Unknown]
  - Maternal exposure before pregnancy [Unknown]

NARRATIVE: CASE EVENT DATE: 20250201
